FAERS Safety Report 6835650-6 (Version None)
Quarter: 2010Q3

REPORT INFORMATION
  Report Type: 
  Country: None (occurrence: None)
  Receive Date: 20100713
  Receipt Date: 20100707
  Transmission Date: 20110219
  Serious: Yes (Hospitalization, Other)
  Sender: FDA-Public Use
  Company Number: US-JNJFOC-20100701735

PATIENT
  Age: 22 Year
  Sex: Male

DRUGS (2)
  1. ULTRACET [Suspect]
     Indication: PRODUCT USED FOR UNKNOWN INDICATION
     Dosage: 10 TABLETS AT 13:00, 5 TABLETS AT 15:00 AND 5 TABLETS AT 17:00
     Route: 048
  2. ETHANOL [Concomitant]

REACTIONS (4)
  - CONVULSION [None]
  - INAPPROPRIATE SCHEDULE OF DRUG ADMINISTRATION [None]
  - OVERDOSE [None]
  - SYNCOPE [None]
